FAERS Safety Report 24579379 (Version 1)
Quarter: 2024Q4

REPORT INFORMATION
  Report Type: Spontaneous
  Country: DE (occurrence: DE)
  Receive Date: 20241105
  Receipt Date: 20241105
  Transmission Date: 20250114
  Serious: Yes (Death)
  Sender: CHEPLAPHARM
  Company Number: DE-CHEPLA-2024013899

PATIENT
  Age: 26 Year

DRUGS (11)
  1. GANCICLOVIR [Suspect]
     Active Substance: GANCICLOVIR
     Indication: Cytomegalovirus viraemia
  2. GANCICLOVIR [Suspect]
     Active Substance: GANCICLOVIR
     Indication: Human herpesvirus 6 infection
  3. GANCICLOVIR [Suspect]
     Active Substance: GANCICLOVIR
     Indication: Cytomegalovirus chorioretinitis
  4. GANCICLOVIR [Suspect]
     Active Substance: GANCICLOVIR
     Indication: Encephalitis cytomegalovirus
  5. FOSCARNET [Suspect]
     Active Substance: FOSCARNET
     Indication: Cytomegalovirus chorioretinitis
  6. FOSCARNET [Suspect]
     Active Substance: FOSCARNET
     Indication: Cytomegalovirus viraemia
  7. FOSCARNET [Suspect]
     Active Substance: FOSCARNET
     Indication: Encephalitis cytomegalovirus
  8. FOSCARNET [Suspect]
     Active Substance: FOSCARNET
     Indication: Human herpesvirus 6 infection
  9. FLUDARABINE [Concomitant]
     Active Substance: FLUDARABINE PHOSPHATE
     Indication: Precursor T-lymphoblastic lymphoma/leukaemia
  10. TACROLIMUS [Concomitant]
     Active Substance: TACROLIMUS
     Indication: Prophylaxis against graft versus host disease
  11. METHOTREXATE [Concomitant]
     Active Substance: METHOTREXATE
     Indication: Prophylaxis against graft versus host disease

REACTIONS (3)
  - Septic shock [Fatal]
  - Bacterial infection [Fatal]
  - Therapy non-responder [Fatal]
